FAERS Safety Report 19440024 (Version 3)
Quarter: 2021Q3

REPORT INFORMATION
  Report Type: Report from Study
  Country: JP (occurrence: JP)
  Receive Date: 20210620
  Receipt Date: 20210813
  Transmission Date: 20211014
  Serious: Yes (Other)
  Sender: FDA-Public Use
  Company Number: JP-JNJFOC-20210630263

PATIENT

DRUGS (1)
  1. STELARA [Suspect]
     Active Substance: USTEKINUMAB
     Indication: PSORIASIS
     Dosage: DOSE UNKNOWN
     Route: 058

REACTIONS (3)
  - Drug ineffective [Unknown]
  - Adverse event [Unknown]
  - Blood test abnormal [Unknown]
